FAERS Safety Report 19420060 (Version 1)
Quarter: 2021Q2

REPORT INFORMATION
  Report Type: Report from Study
  Country: US (occurrence: US)
  Receive Date: 20210615
  Receipt Date: 20210615
  Transmission Date: 20210717
  Serious: Yes (Hospitalization, Other)
  Sender: FDA-Public Use
  Company Number: US-ASTRAZENECA-2021A518871

PATIENT
  Sex: Male

DRUGS (13)
  1. TRAZODONE [Suspect]
     Active Substance: TRAZODONE HYDROCHLORIDE
     Indication: SLEEP DISORDER
     Dosage: 50.0MG UNKNOWN
     Route: 048
     Dates: start: 2019
  2. ASPIRIN. [Concomitant]
     Active Substance: ASPIRIN
  3. SINEMET [Concomitant]
     Active Substance: CARBIDOPA\LEVODOPA
  4. SEROQUEL [Suspect]
     Active Substance: QUETIAPINE FUMARATE
     Route: 048
     Dates: start: 2019
  5. NUPLAZID [Concomitant]
     Active Substance: PIMAVANSERIN TARTRATE
  6. KEFLEX [Concomitant]
     Active Substance: CEPHALEXIN
  7. AMBIEN [Concomitant]
     Active Substance: ZOLPIDEM TARTRATE
  8. DUOPA [Suspect]
     Active Substance: CARBIDOPA\LEVODOPA
     Route: 003
     Dates: start: 20210520
  9. KLONOPIN [Suspect]
     Active Substance: CLONAZEPAM
     Indication: SLEEP DISORDER
     Route: 048
  10. MELATONIN [Concomitant]
     Active Substance: MELATONIN
  11. ZOLOFT [Concomitant]
     Active Substance: SERTRALINE HYDROCHLORIDE
  12. OXYCODONE [Concomitant]
     Active Substance: OXYCODONE
  13. STALEVO [Concomitant]
     Active Substance: CARBIDOPA\ENTACAPONE\LEVODOPA

REACTIONS (21)
  - Peripheral swelling [Recovered/Resolved]
  - Mobility decreased [Recovering/Resolving]
  - Stoma site erythema [Recovered/Resolved]
  - General symptom [Recovered/Resolved]
  - Stoma site discharge [Not Recovered/Not Resolved]
  - Pyrexia [Recovered/Resolved]
  - Infection [Not Recovered/Not Resolved]
  - White blood cell count increased [Unknown]
  - Tremor [Recovered/Resolved]
  - Somnambulism [Recovering/Resolving]
  - Hyperphagia [Recovering/Resolving]
  - Drug ineffective [Recovered/Resolved]
  - Off label use [Unknown]
  - Malaise [Recovered/Resolved]
  - Cold sweat [Recovered/Resolved]
  - Hyperhidrosis [Recovering/Resolving]
  - Feeling jittery [Recovered/Resolved]
  - Stoma site infection [Recovered/Resolved]
  - Stoma site hypergranulation [Recovered/Resolved]
  - Fall [Recovering/Resolving]
  - Stoma site pain [Recovered/Resolved]

NARRATIVE: CASE EVENT DATE: 2021
